FAERS Safety Report 6555462-0 (Version None)
Quarter: 2010Q1

REPORT INFORMATION
  Report Type: 
  Country: None (occurrence: None)
  Receive Date: 20100128
  Receipt Date: 20100127
  Transmission Date: 20100710
  Serious: Yes (Other)
  Sender: FDA-Public Use
  Company Number: US-BAYER-201011882NA

PATIENT
  Age: 63 Year
  Sex: Male

DRUGS (2)
  1. BETAPACE [Suspect]
     Indication: ATRIAL FIBRILLATION
     Dates: end: 20090101
  2. BIOSEDRA [Concomitant]

REACTIONS (2)
  - BRADYCARDIA [None]
  - DRUG INEFFECTIVE [None]
